FAERS Safety Report 15203030 (Version 1)
Quarter: 2018Q3

REPORT INFORMATION
  Report Type: Spontaneous
  Country: US (occurrence: US)
  Receive Date: 20180726
  Receipt Date: 20180726
  Transmission Date: 20181010
  Serious: No
  Sender: FDA-Public Use
  Company Number: US-009507513-1807USA010529

PATIENT
  Sex: Female

DRUGS (1)
  1. NEXPLANON [Suspect]
     Active Substance: ETONOGESTREL
     Indication: CONTRACEPTION
     Dosage: 1 ROD (68 MG), ONCE
     Route: 059
     Dates: start: 20180301, end: 2018

REACTIONS (2)
  - Menorrhagia [Unknown]
  - Mood swings [Unknown]

NARRATIVE: CASE EVENT DATE: 2018
